FAERS Safety Report 5567275-7 (Version None)
Quarter: 2007Q4

REPORT INFORMATION
  Report Type: 
  Country: None (occurrence: None)
  Receive Date: 20071219
  Receipt Date: 20070704
  Transmission Date: 20080405
  Serious: Yes (Death, Hospitalization)
  Sender: FDA-Public Use
  Company Number: JP-AMGEN-US221326

PATIENT
  Sex: Female
  Weight: 40 kg

DRUGS (10)
  1. ENBREL [Suspect]
     Indication: RHEUMATOID ARTHRITIS
     Route: 058
     Dates: start: 20070111, end: 20070329
  2. MIGLITOL [Concomitant]
     Dosage: UNKNOWN
     Route: 048
  3. FOSAMAX [Concomitant]
     Dosage: UNKNOWN
     Route: 048
  4. ISCOTIN [Concomitant]
     Dosage: UNKNOWN
     Route: 048
  5. MUCOSTA [Concomitant]
     Dosage: UNKNOWN
     Route: 048
  6. PREDONINE [Concomitant]
     Indication: RHEUMATOID ARTHRITIS
     Dosage: UNKNOWN
     Route: 048
  7. PREDNISOLONE [Concomitant]
     Indication: RHEUMATOID ARTHRITIS
     Dosage: UNKNOWN
     Route: 048
  8. RIMACTANE [Concomitant]
     Dosage: UNKNOWN
     Route: 048
  9. APOLAKETE [Concomitant]
     Dosage: UNKNOWN
     Route: 048
  10. HYPEN [Concomitant]
     Dosage: UNKNOWN
     Route: 048

REACTIONS (1)
  - ACUTE CORONARY SYNDROME [None]
